FAERS Safety Report 22297130 (Version 1)
Quarter: 2023Q2

REPORT INFORMATION
  Report Type: Other
  Country: US (occurrence: None)
  Receive Date: 20230509
  Receipt Date: 20230509
  Transmission Date: 20230722
  Serious: Yes (Hospitalization)
  Sender: FDA-Public Use
  Company Number: US-ROCHE-3341075

PATIENT
  Age: 73 Year
  Sex: Female
  Weight: 56.750 kg

DRUGS (8)
  1. OCREVUS [Suspect]
     Active Substance: OCRELIZUMAB
     Indication: Primary progressive multiple sclerosis
     Route: 042
  2. OCREVUS [Suspect]
     Active Substance: OCRELIZUMAB
     Route: 042
  3. TAMSULOSIN [Concomitant]
     Active Substance: TAMSULOSIN
  4. AMANTADINE [Concomitant]
     Active Substance: AMANTADINE
  5. BACLOFEN [Concomitant]
     Active Substance: BACLOFEN
  6. ARICEPT [Concomitant]
     Active Substance: DONEPEZIL HYDROCHLORIDE
  7. AMBIEN [Concomitant]
     Active Substance: ZOLPIDEM TARTRATE
  8. ZOLPIDEM [Concomitant]
     Active Substance: ZOLPIDEM TARTRATE

REACTIONS (5)
  - Mental impairment [Not Recovered/Not Resolved]
  - White blood cell count decreased [Unknown]
  - Arthropod bite [Recovered/Resolved]
  - Lyme disease [Recovered/Resolved]
  - Calcium deficiency [Unknown]
